FAERS Safety Report 20955011 (Version 1)
Quarter: 2022Q2

REPORT INFORMATION
  Report Type: Spontaneous
  Country: GB (occurrence: GB)
  Receive Date: 20220614
  Receipt Date: 20220614
  Transmission Date: 20220721
  Serious: No
  Sender: FDA-Public Use
  Company Number: None

PATIENT
  Age: 60 Year
  Sex: Female
  Weight: 85 kg

DRUGS (18)
  1. SOLIFENACIN [Suspect]
     Active Substance: SOLIFENACIN
     Indication: Product used for unknown indication
     Dosage: 1 DOSAGE FORM DAILY (TAKE 1 DAILY)
     Route: 065
     Dates: start: 20210724, end: 20220516
  2. ADCAL [Concomitant]
     Indication: Bone disorder
     Dosage: 2 DOSAGE FORM, BID (TAKE 2 TABLETS TWICE A DAY FOR THE BONES - PREF)
     Route: 065
     Dates: start: 20190724
  3. CITALOPRAM [Concomitant]
     Active Substance: CITALOPRAM HYDROBROMIDE
     Indication: Affective disorder
     Dosage: 2 DOSAGE FORM (TAKE 2 EVERY DAY FOR MOOD
     Route: 065
     Dates: start: 20211229
  4. CLOBETASONE BUTYRATE [Concomitant]
     Active Substance: CLOBETASONE BUTYRATE
     Indication: Product used for unknown indication
     Dosage: UNK (APPLY TO AFFECTED AREA ONCE OR TWICE A DAY
     Route: 065
     Dates: start: 20190724, end: 20220331
  5. DOXYCYCLINE [Concomitant]
     Active Substance: DOXYCYCLINE
     Indication: Product used for unknown indication
     Dosage: UNK (TAKE TWO NOW THEN ONE DAILY)
     Route: 065
     Dates: start: 20220426, end: 20220503
  6. ESTRADIOL [Concomitant]
     Active Substance: ESTRADIOL
     Indication: Product used for unknown indication
     Dosage: UNK(INSERT ONE PESSARY INTO THE VAGINA. WHEN FIRST)
     Route: 067
     Dates: start: 20190724
  7. FOLIC ACID [Concomitant]
     Active Substance: FOLIC ACID
     Indication: Product used for unknown indication
     Dosage: 2 DOSAGE FORM (TAKE 2 TABLETS EACH WEEK, ONE THE DAY BEFORE AN)
     Route: 065
     Dates: start: 20211229
  8. LANSOPRAZOLE [Concomitant]
     Active Substance: LANSOPRAZOLE
     Indication: Gastrooesophageal reflux disease
     Dosage: 1 DOSAGE FORM AS NEEDED (ONE DAILY TO REDUCE STOMACH ACID, AS NEEDED)
     Route: 065
     Dates: start: 20211229
  9. POLYETHYLENE GLYCOL 3350\POTASSIUM CHLORIDE\SODIUM BICARBONATE\SODIUM [Concomitant]
     Active Substance: POLYETHYLENE GLYCOL 3350\POTASSIUM CHLORIDE\SODIUM BICARBONATE\SODIUM CHLORIDE
     Indication: Product used for unknown indication
     Dosage: UNK (USE AS DIRECTED 1 TO 2 DAILY AND ADJUST DOSE AC)
     Route: 065
     Dates: start: 20220426, end: 20220511
  10. MELOXICAM [Concomitant]
     Active Substance: MELOXICAM
     Indication: Inflammation
     Dosage: 1 DOSAGE FORM, BID (TAKE ONE TWICE A DAY FOR INFLAMMATION AS NEEDED)
     Route: 065
     Dates: start: 20211229
  11. METHOTREXATE [Concomitant]
     Active Substance: METHOTREXATE
     Indication: Product used for unknown indication
     Dosage: 12.5 MILLIGRAM (FIVE TABLETS TO BE TAKEN WEEKLY)
     Route: 065
     Dates: start: 20211229
  12. NITROFURANTOIN [Concomitant]
     Active Substance: NITROFURANTOIN
     Indication: Product used for unknown indication
     Dosage: 1 DOSAGE FORM, BID (TAKE ONE TWICE DAILY FIRST LINE TO TREAT YOUR U)
     Route: 065
     Dates: start: 20220325, end: 20220328
  13. ACETAMINOPHEN [Concomitant]
     Active Substance: ACETAMINOPHEN
     Indication: Product used for unknown indication
     Dosage: 2 DOSAGE FORM, BID (TWO TO BE TAKEN TWO TIMES A DAY WHEN REQUIRED)
     Route: 065
     Dates: start: 20210209
  14. PREDNISOLONE [Concomitant]
     Active Substance: PREDNISOLONE
     Indication: Product used for unknown indication
     Dosage: 8 DOSAGE FORM, QD (TAKE 8 TABLETS TOGETHER EVERY MORNING FOR AT)
     Route: 065
     Dates: start: 20211229
  15. ALBUTEROL [Concomitant]
     Active Substance: ALBUTEROL
     Indication: Chronic obstructive pulmonary disease
     Dosage: 2 DOSAGE FORM AS NEEDED (INHALE 2 DOSES AS NEEDED FOR COPD)
     Dates: start: 20220331
  16. ALBUTEROL [Concomitant]
     Active Substance: ALBUTEROL
     Indication: Product used for unknown indication
     Dosage: UNK (INHALE TWO PUFFS 4 HOURLY AS NEEDED
     Dates: start: 20211229, end: 20220331
  17. TRELEGY ELLIPTA [Concomitant]
     Active Substance: FLUTICASONE FUROATE\UMECLIDINIUM BROMIDE\VILANTEROL TRIFENATATE
     Indication: Product used for unknown indication
     Dosage: UNK (LAMA/LABA/ICS: INHALE FORCEFULLY AND DEEPLY ONE
     Dates: start: 20211229
  18. ACETAMINOPHEN\CODEINE PHOSPHATE [Concomitant]
     Active Substance: ACETAMINOPHEN\CODEINE PHOSPHATE
     Indication: Product used for unknown indication
     Dosage: UNK (1 TO 2 EVERY 4 TO 6 HOURS AS REQUIRED TO A MAXI)
     Route: 065
     Dates: start: 20220429, end: 20220511

REACTIONS (1)
  - Headache [Recovered/Resolved]

NARRATIVE: CASE EVENT DATE: 20220516
